FAERS Safety Report 6625729-6 (Version None)
Quarter: 2010Q1

REPORT INFORMATION
  Report Type: 
  Country: None (occurrence: None)
  Receive Date: 20100310
  Receipt Date: 20100301
  Transmission Date: 20100710
  Serious: Yes (Other)
  Sender: FDA-Public Use
  Company Number: US-JNJFOC-20100202659

PATIENT
  Sex: Male

DRUGS (3)
  1. ULTRAM [Suspect]
     Indication: DRUG USE FOR UNKNOWN INDICATION
     Route: 065
  2. OXYCONTIN [Suspect]
     Indication: PROCEDURAL PAIN
     Dosage: 1 EVERY 12 HOURS
     Route: 065
  3. PERCOCET [Suspect]
     Indication: PROCEDURAL PAIN
     Dosage: 1 EVERY 4-6 HOURS
     Route: 065

REACTIONS (4)
  - CYANOSIS [None]
  - HYPOVENTILATION [None]
  - MIOSIS [None]
  - RESPIRATORY ARREST [None]
